APPROVED DRUG PRODUCT: SIKLOS
Active Ingredient: HYDROXYUREA
Strength: 100MG
Dosage Form/Route: TABLET;ORAL
Application: N208843 | Product #001
Applicant: THERAVIA PHARMA
Approved: Dec 21, 2017 | RLD: Yes | RS: No | Type: RX